FAERS Safety Report 8572877-X (Version None)
Quarter: 2012Q3

REPORT INFORMATION
  Report Type: 
  Country: None (occurrence: None)
  Receive Date: 20120806
  Receipt Date: 20120725
  Transmission Date: 20120928
  Serious: Yes (Hospitalization, Disabling, Other)
  Sender: FDA-Public Use
  Company Number: US-009507513-1011USA00403

PATIENT

DRUGS (8)
  1. FOSAMAX [Suspect]
     Indication: OSTEOPENIA
     Dosage: 70 MG, QW
     Route: 048
     Dates: start: 20020905, end: 20071226
  2. FOSAMAX [Suspect]
     Dosage: 70 MG, QW
     Route: 048
     Dates: start: 20080302
  3. SYNTHROID [Concomitant]
     Indication: HYPOTHYROIDISM
  4. PRILOSEC [Concomitant]
     Indication: GASTROOESOPHAGEAL REFLUX DISEASE
     Dates: start: 19900101
  5. FOSAMAX [Suspect]
     Dosage: 70 MG, QW
     Route: 048
     Dates: start: 20080410, end: 20101001
  6. FOSAMAX [Suspect]
     Indication: OSTEOPOROSIS
     Dosage: 70 MG, QW
     Route: 048
     Dates: start: 20020101, end: 20080201
  7. ALENDRONATE SODIUM [Suspect]
     Indication: OSTEOPOROSIS
     Dosage: 70 MG
     Route: 048
     Dates: start: 20080925
  8. ALENDRONATE SODIUM [Suspect]
     Indication: OSTEOPENIA

REACTIONS (86)
  - GASTROENTERITIS [None]
  - LUMBAR RADICULOPATHY [None]
  - SCOLIOSIS [None]
  - TENDONITIS [None]
  - MITRAL VALVE DISEASE [None]
  - HYPERPARATHYROIDISM [None]
  - ABDOMINAL PAIN [None]
  - HOMOCYSTINAEMIA [None]
  - INTERVERTEBRAL DISC DISPLACEMENT [None]
  - HYPOTENSION [None]
  - POST PROCEDURAL BILE LEAK [None]
  - CARDIAC FAILURE [None]
  - OSTEOPOROSIS [None]
  - MACROCYTOSIS [None]
  - CARDIOMEGALY [None]
  - ROTATOR CUFF SYNDROME [None]
  - VOMITING [None]
  - IRRITABLE BOWEL SYNDROME [None]
  - CHOLANGITIS [None]
  - ARTHROPATHY [None]
  - SPINAL COLUMN STENOSIS [None]
  - INTERVERTEBRAL DISC DEGENERATION [None]
  - OEDEMA PERIPHERAL [None]
  - METATARSALGIA [None]
  - DIVERTICULUM [None]
  - CHILLS [None]
  - DIARRHOEA [None]
  - COLON ADENOMA [None]
  - ANGINA PECTORIS [None]
  - VIRAL INFECTION [None]
  - PATELLA FRACTURE [None]
  - CARDIAC ANEURYSM [None]
  - OVARIAN CYST [None]
  - INTERVERTEBRAL DISC PROTRUSION [None]
  - STRESS URINARY INCONTINENCE [None]
  - PANCREATITIS [None]
  - DIASTOLIC DYSFUNCTION [None]
  - STRESS FRACTURE [None]
  - LOW TURNOVER OSTEOPATHY [None]
  - FOOT DEFORMITY [None]
  - BILE DUCT STENOSIS [None]
  - FALL [None]
  - ANAEMIA MACROCYTIC [None]
  - DECREASED APPETITE [None]
  - TYPE 2 DIABETES MELLITUS [None]
  - RENAL CYST [None]
  - GASTRIC POLYPS [None]
  - SPINAL FRACTURE [None]
  - FRACTURED SACRUM [None]
  - NEURALGIA [None]
  - DYSPNOEA EXERTIONAL [None]
  - EYELID PTOSIS [None]
  - PYREXIA [None]
  - ATRIAL TACHYCARDIA [None]
  - MUSCLE INJURY [None]
  - LEFT ATRIAL DILATATION [None]
  - MYOCARDIAL ISCHAEMIA [None]
  - PAIN IN EXTREMITY [None]
  - FAECAL INCONTINENCE [None]
  - ANORECTAL DISORDER [None]
  - INSOMNIA [None]
  - HYPERTENSION [None]
  - COLONIC POLYP [None]
  - UTERINE LEIOMYOMA [None]
  - POST LAMINECTOMY SYNDROME [None]
  - SPINAL OSTEOARTHRITIS [None]
  - PLANTAR FASCIITIS [None]
  - BACK PAIN [None]
  - ATRIAL FIBRILLATION [None]
  - SUPRAVENTRICULAR TACHYCARDIA [None]
  - DEHYDRATION [None]
  - FEMUR FRACTURE [None]
  - OSTEOARTHRITIS [None]
  - ABDOMINAL HERNIA [None]
  - SCIATICA [None]
  - PHARYNGITIS STREPTOCOCCAL [None]
  - ADNEXA UTERI CYST [None]
  - MYELODYSPLASTIC SYNDROME [None]
  - ANAEMIA [None]
  - IRON DEFICIENCY [None]
  - VITAMIN D DEFICIENCY [None]
  - PAIN [None]
  - RHINITIS ALLERGIC [None]
  - DEAFNESS NEUROSENSORY [None]
  - LIVER DISORDER [None]
  - NAUSEA [None]
